FAERS Safety Report 4869028-1 (Version None)
Quarter: 2005Q4

REPORT INFORMATION
  Report Type: 
  Country: None (occurrence: None)
  Receive Date: 20051223
  Receipt Date: 20051213
  Transmission Date: 20060501
  Serious: Yes (Other)
  Sender: FDA-Public Use
  Company Number: 2005RR-01333

PATIENT
  Age: 33 Year
  Sex: Female

DRUGS (2)
  1. NUROFEN PLUS (CODEINE) [Suspect]
     Dosage: ORAL
     Route: 048
  2. IBUPROFEN TABLETS [Suspect]
     Dosage: ORAL
     Route: 048

REACTIONS (1)
  - DRUG DEPENDENCE [None]
